FAERS Safety Report 5061875-9 (Version None)
Quarter: 2006Q3

REPORT INFORMATION
  Report Type: 
  Country: None (occurrence: None)
  Receive Date: 20060726
  Receipt Date: 20060726
  Transmission Date: 20061208
  Serious: Yes (Other)
  Sender: FDA-Public Use
  Company Number: None

PATIENT
  Sex: Male

DRUGS (1)
  1. LUBRICANT EYE DROPS (CARBOXYMETHYLCELLULOSE SODIUM 0.5%) - ALTAIRE PHA [Suspect]
     Dates: start: 20060301, end: 20060401

REACTIONS (6)
  - EYE IRRITATION [None]
  - EYE PAIN [None]
  - OCULAR HYPERAEMIA [None]
  - PHARMACEUTICAL PRODUCT COMPLAINT [None]
  - POOR QUALITY DRUG ADMINISTERED [None]
  - VISUAL ACUITY REDUCED [None]
